FAERS Safety Report 10867758 (Version 3)
Quarter: 2015Q2

REPORT INFORMATION
  Report Type: Spontaneous
  Country: BG (occurrence: BG)
  Receive Date: 20150225
  Receipt Date: 20150424
  Transmission Date: 20150821
  Serious: Yes (Hospitalization)
  Sender: FDA-Public Use
  Company Number: BG-ASTRAZENECA-2015SE16551

PATIENT
  Age: 75 Year
  Sex: Male

DRUGS (5)
  1. KARDIKET [Concomitant]
  2. BRILIQUE [Suspect]
     Active Substance: TICAGRELOR
     Indication: ACUTE CORONARY SYNDROME
     Route: 048
  3. FURANTHRYL [Concomitant]
  4. BISOGAMMA [Concomitant]
  5. PRESTARIUM [Concomitant]
     Active Substance: PERINDOPRIL

REACTIONS (1)
  - Chronic kidney disease [Unknown]
